FAERS Safety Report 9704947 (Version 1)
Quarter: 2013Q4

REPORT INFORMATION
  Report Type: Spontaneous
  Country: FR (occurrence: FR)
  Receive Date: 20131122
  Receipt Date: 20131122
  Transmission Date: 20140711
  Serious: Yes (Disabling)
  Sender: FDA-Public Use
  Company Number: FR-ABBVIE-13P-056-1171665-00

PATIENT
  Age: 39 Year
  Sex: Female

DRUGS (5)
  1. DEPAKOTE [Suspect]
     Indication: PSYCHOTIC DISORDER
     Route: 048
     Dates: start: 1998
  2. AMISULPRIDE [Suspect]
     Indication: PSYCHOTIC DISORDER
     Route: 048
  3. CYAMEMAZINE [Suspect]
     Indication: PSYCHOTIC DISORDER
     Route: 048
  4. CLORAZEPATE DIPOTASSIUM [Suspect]
     Indication: PRODUCT USED FOR UNKNOWN INDICATION
     Route: 048
  5. PAROXETINE [Suspect]
     Indication: ANXIETY DISORDER
     Dosage: 40 MG DAILY
     Route: 048

REACTIONS (7)
  - Type V hyperlipidaemia [Not Recovered/Not Resolved]
  - Gastrointestinal disorder [Not Recovered/Not Resolved]
  - Chest pain [Not Recovered/Not Resolved]
  - Urine odour abnormal [Not Recovered/Not Resolved]
  - Hypotension [Not Recovered/Not Resolved]
  - Weight increased [Not Recovered/Not Resolved]
  - Oedema peripheral [Not Recovered/Not Resolved]
